FAERS Safety Report 11730289 (Version 1)
Quarter: 2015Q4

REPORT INFORMATION
  Report Type: Spontaneous
  Country: US (occurrence: US)
  Receive Date: 20151112
  Receipt Date: 20151112
  Transmission Date: 20160304
  Serious: Yes (Other)
  Sender: FDA-Public Use
  Company Number: US-TEVA-607674USA

PATIENT
  Sex: Female

DRUGS (17)
  1. AMPYRA [Suspect]
     Active Substance: DALFAMPRIDINE
     Route: 065
  2. LOSARTAN. [Concomitant]
     Active Substance: LOSARTAN
     Route: 065
  3. VITAMIN D [Concomitant]
     Active Substance: CHOLECALCIFEROL
     Route: 065
  4. TECFIDERA [Suspect]
     Active Substance: DIMETHYL FUMARATE
     Route: 065
  5. BUTALBITAL [Concomitant]
     Active Substance: BUTALBITAL
     Route: 065
  6. LEVOTHYROXINE. [Concomitant]
     Active Substance: LEVOTHYROXINE
     Route: 065
  7. FORMOTEROL FUMARATE [Concomitant]
     Active Substance: FORMOTEROL FUMARATE
     Route: 065
  8. FLONASE [Concomitant]
     Active Substance: FLUTICASONE PROPIONATE
     Route: 065
  9. COPAXONE [Suspect]
     Active Substance: GLATIRAMER ACETATE
     Indication: MULTIPLE SCLEROSIS
     Dosage: UNKNOWN FORM STRENGTH
  10. TYLENOL [Concomitant]
     Active Substance: ACETAMINOPHEN
     Route: 065
  11. ZOLOFT [Concomitant]
     Active Substance: SERTRALINE HYDROCHLORIDE
     Route: 065
  12. VENTOLIN [Concomitant]
     Active Substance: ALBUTEROL SULFATE
     Route: 065
  13. VITAMIN C [Concomitant]
     Active Substance: ASCORBIC ACID
     Route: 065
  14. AUBAGIO [Suspect]
     Active Substance: TERIFLUNOMIDE
     Route: 065
  15. DIPHENHYDRAMINE. [Concomitant]
     Active Substance: DIPHENHYDRAMINE
     Route: 065
  16. LORAZEPAM. [Concomitant]
     Active Substance: LORAZEPAM
     Route: 065
  17. EZETIMIBE. [Concomitant]
     Active Substance: EZETIMIBE
     Route: 065

REACTIONS (9)
  - Flushing [Unknown]
  - Headache [Unknown]
  - JC virus test positive [Unknown]
  - Burning sensation [Unknown]
  - Depression [Unknown]
  - Migraine [Unknown]
  - Neck pain [Unknown]
  - Suicidal ideation [Unknown]
  - Balance disorder [Unknown]

NARRATIVE: CASE EVENT DATE: 2015
